FAERS Safety Report 5564042-5 (Version None)
Quarter: 2007Q4

REPORT INFORMATION
  Report Type: 
  Country: None (occurrence: None)
  Receive Date: 20071217
  Receipt Date: 20071211
  Transmission Date: 20080405
  Serious: Yes (Other)
  Sender: FDA-Public Use
  Company Number: US-BOEHRINGER INGELHEIM PHARMACEUTICALS, INC.-2007-BP-25188BP

PATIENT
  Sex: Female

DRUGS (16)
  1. SPIRIVA [Suspect]
     Indication: CHRONIC OBSTRUCTIVE PULMONARY DISEASE
     Route: 055
  2. COMBIVENT [Suspect]
  3. XOPENEX [Concomitant]
     Indication: CHRONIC OBSTRUCTIVE PULMONARY DISEASE
  4. FORADIL [Concomitant]
     Indication: CHRONIC OBSTRUCTIVE PULMONARY DISEASE
  5. FLOVENT [Concomitant]
     Indication: CHRONIC OBSTRUCTIVE PULMONARY DISEASE
  6. SINGULAIR [Concomitant]
     Indication: CHRONIC OBSTRUCTIVE PULMONARY DISEASE
  7. SERTRALINE [Concomitant]
     Indication: DEPRESSION
  8. ASTELIN [Concomitant]
     Indication: MULTIPLE ALLERGIES
  9. OMEPRAZOLE [Concomitant]
     Indication: REFLUX OESOPHAGITIS
  10. FAMOTIDINE [Concomitant]
     Indication: REFLUX GASTRITIS
  11. ARIMIDEX [Concomitant]
     Indication: BREAST CANCER
  12. ALPRAZOLAM [Concomitant]
     Indication: SLEEP DISORDER
  13. LUNESTA [Concomitant]
     Indication: SLEEP DISORDER
  14. ALBUTEROL [Concomitant]
  15. METHYLPREDNISOLONE [Concomitant]
  16. HYDROCODONE BITARTRATE [Concomitant]

REACTIONS (3)
  - BREAST CANCER [None]
  - CATARACT [None]
  - VISION BLURRED [None]
